FAERS Safety Report 6416133-4 (Version None)
Quarter: 2009Q4

REPORT INFORMATION
  Report Type: 
  Country: None (occurrence: None)
  Receive Date: 20091027
  Receipt Date: 20091006
  Transmission Date: 20100525
  Serious: Yes (Death)
  Sender: FDA-Public Use
  Company Number: US-WYE-H10927309

PATIENT
  Age: 64 Year
  Sex: Female
  Weight: 99.6 kg

DRUGS (4)
  1. TEMSIROLIMUS [Suspect]
     Indication: ENDOMETRIAL CANCER RECURRENT
     Route: 042
     Dates: start: 20090615, end: 20090831
  2. TAMOXIFEN CITRATE [Suspect]
     Indication: ENDOMETRIAL CANCER
     Dosage: 20 MG TWICE A DAY FOR 3 WEEKS
     Route: 048
     Dates: start: 20090615, end: 20090901
  3. BENADRYL [Concomitant]
     Route: 042
     Dates: start: 20090831, end: 20090831
  4. MEGESTROL ACETATE [Suspect]
     Indication: ENDOMETRIAL CANCER
     Dosage: 80 MG TWICE A DAY FOR 3 WEEKS
     Route: 048
     Dates: start: 20090615, end: 20090817

REACTIONS (1)
  - DEATH [None]
